FAERS Safety Report 19695659 (Version 2)
Quarter: 2021Q4

REPORT INFORMATION
  Report Type: Spontaneous
  Country: JP (occurrence: JP)
  Receive Date: 20210813
  Receipt Date: 20211116
  Transmission Date: 20220303
  Serious: Yes (Hospitalization, Other)
  Sender: FDA-Public Use
  Company Number: JP-BAUSCH-BL-2021-027853

PATIENT
  Age: 27 Year
  Sex: Female

DRUGS (3)
  1. BRODALUMAB [Suspect]
     Active Substance: BRODALUMAB
     Indication: Psoriasis
     Route: 058
     Dates: start: 20200306, end: 202107
  2. BRODALUMAB [Suspect]
     Active Substance: BRODALUMAB
     Route: 058
     Dates: start: 20210925
  3. BETAMETHASONE\CALCIPOTRIENE [Concomitant]
     Active Substance: BETAMETHASONE\CALCIPOTRIENE
     Indication: Product used for unknown indication
     Route: 065

REACTIONS (2)
  - Endometriosis [Recovered/Resolved]
  - Endometriosis [Recovered/Resolved]

NARRATIVE: CASE EVENT DATE: 20210503
